FAERS Safety Report 8485784-8 (Version None)
Quarter: 2012Q3

REPORT INFORMATION
  Report Type: 
  Country: None (occurrence: None)
  Receive Date: 20120703
  Receipt Date: 20120626
  Transmission Date: 20120928
  Serious: Yes (Death, Hospitalization)
  Sender: FDA-Public Use
  Company Number: US-AMGEN-USACT2012039866

PATIENT
  Age: 71 Year
  Sex: Female
  Weight: 88 kg

DRUGS (8)
  1. CARBOPLATIN [Concomitant]
     Indication: NON-SMALL CELL LUNG CANCER
     Dosage: 1567 MG, QWK
     Dates: start: 20120206, end: 20120312
  2. LOVENOX [Concomitant]
  3. PANITUMUMAB [Suspect]
     Indication: NON-SMALL CELL LUNG CANCER
     Dosage: 1500 MG, QWK
     Dates: start: 20120206, end: 20120312
  4. LASIX [Concomitant]
  5. OXYGEN [Concomitant]
  6. PREDNISONE [Concomitant]
  7. TAXOL [Concomitant]
     Indication: NON-SMALL CELL LUNG CANCER
     Dosage: 633 MG, QWK
     Dates: start: 20120206, end: 20120312
  8. COUMADIN [Concomitant]

REACTIONS (4)
  - PNEUMONIA [None]
  - PNEUMONITIS [None]
  - RESPIRATORY FAILURE [None]
  - SEPSIS [None]
